FAERS Safety Report 23584985 (Version 1)
Quarter: 2024Q1

REPORT INFORMATION
  Report Type: Spontaneous
  Country: FR (occurrence: FR)
  Receive Date: 20240301
  Receipt Date: 20240301
  Transmission Date: 20240409
  Serious: Yes (Other)
  Sender: FDA-Public Use
  Company Number: FR-AFSSAPS-AVCN2024000083

PATIENT
  Age: 36 Year
  Sex: Male

DRUGS (5)
  1. ACETAMINOPHEN [Suspect]
     Active Substance: ACETAMINOPHEN
     Indication: Product used for unknown indication
     Dosage: UNK
     Route: 045
  2. CAFFEINE [Suspect]
     Active Substance: CAFFEINE
     Indication: Product used for unknown indication
     Dosage: UNK
     Route: 045
  3. HEROIN [Suspect]
     Active Substance: DIAMORPHINE
     Indication: Product used for unknown indication
     Dosage: UNK (QUOTIDIENNE)
     Route: 045
  4. MORPHINE [Suspect]
     Active Substance: MORPHINE
     Indication: Product used for unknown indication
     Dosage: UNK
     Route: 045
  5. NOSCAPINE [Suspect]
     Active Substance: NOSCAPINE
     Indication: Product used for unknown indication
     Dosage: UNK
     Route: 045

REACTIONS (5)
  - Drug abuse [Not Recovered/Not Resolved]
  - Nasal discomfort [Recovering/Resolving]
  - Rhinalgia [Recovering/Resolving]
  - Nasal inflammation [Recovering/Resolving]
  - Ear, nose and throat infection [Recovering/Resolving]

NARRATIVE: CASE EVENT DATE: 20231015
